FAERS Safety Report 6171911-4 (Version None)
Quarter: 2009Q2

REPORT INFORMATION
  Report Type: 
  Country: None (occurrence: None)
  Receive Date: 20090429
  Receipt Date: 20090424
  Transmission Date: 20091009
  Serious: Yes (Other)
  Sender: FDA-Public Use
  Company Number: US-MERCK-0904USA03998

PATIENT
  Age: 9 Year
  Sex: Male

DRUGS (5)
  1. SINGULAIR [Suspect]
     Indication: HYPERSENSITIVITY
     Route: 048
     Dates: start: 20060901
  2. SINGULAIR [Suspect]
     Route: 048
     Dates: end: 20090219
  3. ZYRTEC [Concomitant]
     Route: 065
  4. NASONEX [Concomitant]
     Route: 065
  5. VERAMYST [Concomitant]
     Route: 065

REACTIONS (3)
  - PERITONSILLAR ABSCESS [None]
  - SINUS HEADACHE [None]
  - SINUSITIS FUNGAL [None]
